FAERS Safety Report 4993646-3 (Version None)
Quarter: 2006Q2

REPORT INFORMATION
  Report Type: 
  Country: None (occurrence: None)
  Receive Date: 20060504
  Receipt Date: 20060504
  Transmission Date: 20061013
  Serious: Yes (Disabling, Other)
  Sender: FDA-Public Use
  Company Number: None

PATIENT
  Sex: Male

DRUGS (2)
  1. RITALIN [Suspect]
     Indication: ATTENTION DEFICIT/HYPERACTIVITY DISORDER
     Dosage: 5 MG THREE TIMES A DAY ORAL
     Route: 048
     Dates: start: 19690901, end: 19780701
  2. RITALIN [Suspect]
     Indication: LEARNING DISORDER
     Dosage: 5 MG THREE TIMES A DAY ORAL
     Route: 048
     Dates: start: 19690901, end: 19780701

REACTIONS (3)
  - OVERDOSE [None]
  - PENILE SIZE REDUCED [None]
  - UNDERDOSE [None]
